FAERS Safety Report 15679135 (Version 1)
Quarter: 2018Q4

REPORT INFORMATION
  Report Type: Spontaneous
  Country: US (occurrence: US)
  Receive Date: 20181203
  Receipt Date: 20181203
  Transmission Date: 20190205
  Serious: No
  Sender: FDA-Public Use
  Company Number: US-ELI_LILLY_AND_COMPANY-US201811009918

PATIENT
  Sex: Female

DRUGS (4)
  1. HUMALOG [Suspect]
     Active Substance: INSULIN LISPRO
     Indication: PRODUCT USED FOR UNKNOWN INDICATION
     Dosage: 6 U, PRN (1 UNIT ADDED FOR 50 POINTS ABOVE)
     Route: 058
  2. HUMALOG [Suspect]
     Active Substance: INSULIN LISPRO
     Dosage: 6 U, PRN ((1 UNIT ADDED FOR 50 POINTS ABOVE)
     Route: 058
  3. HUMALOG [Suspect]
     Active Substance: INSULIN LISPRO
     Indication: PRODUCT USED FOR UNKNOWN INDICATION
     Dosage: 6 U, PRN (1 UNITS ADDED FOR EACHH 50 POINT ABOVE)
     Route: 058
  4. HUMALOG [Suspect]
     Active Substance: INSULIN LISPRO
     Dosage: 6 U, PRN(1 UNITS ADDED FOR EVERY 50 POINT ABOVE)
     Route: 058

REACTIONS (2)
  - Incorrect dose administered [Recovering/Resolving]
  - Blood glucose abnormal [Recovering/Resolving]
